FAERS Safety Report 17966875 (Version 2)
Quarter: 2020Q3

REPORT INFORMATION
  Report Type: Report from Study
  Country: IL (occurrence: IL)
  Receive Date: 20200701
  Receipt Date: 20200729
  Transmission Date: 20201103
  Serious: No
  Sender: FDA-Public Use
  Company Number: IL-KARYOPHARM-2020KPT000662

PATIENT
  Age: 68 Year
  Sex: Female

DRUGS (1)
  1. SELINEXOR [Suspect]
     Active Substance: SELINEXOR
     Indication: SARCOMA
     Dosage: UNK
     Dates: start: 20200226, end: 20200429

REACTIONS (2)
  - Decreased appetite [Unknown]
  - Mood altered [Unknown]
